FAERS Safety Report 7494893-1 (Version None)
Quarter: 2011Q2

REPORT INFORMATION
  Report Type: 
  Country: None (occurrence: None)
  Receive Date: 20110520
  Receipt Date: 20110516
  Transmission Date: 20111010
  Serious: Yes (Hospitalization)
  Sender: FDA-Public Use
  Company Number: US-ABBOTT-11P-163-0726295-00

PATIENT
  Age: 78 Year
  Sex: Female

DRUGS (4)
  1. LEVOTHROID [Suspect]
     Route: 048
     Dates: start: 20080101, end: 20110404
  2. LEVOTHROID [Suspect]
     Indication: HYPOTHYROIDISM
     Route: 048
     Dates: start: 20010101, end: 20080101
  3. SYNTHROID [Suspect]
     Indication: HYPOTHYROIDISM
     Route: 048
     Dates: start: 20110405, end: 20110429
  4. ACTONEL [Concomitant]
     Indication: OSTEOPOROSIS
     Route: 048

REACTIONS (5)
  - RASH [None]
  - SWELLING [None]
  - HAEMATOMA [None]
  - ATRIAL FIBRILLATION [None]
  - CHEST PAIN [None]
